FAERS Safety Report 19674248 (Version 3)
Quarter: 2021Q3

REPORT INFORMATION
  Report Type: Spontaneous
  Country: US (occurrence: US)
  Receive Date: 20210809
  Receipt Date: 20210915
  Transmission Date: 20211014
  Serious: No
  Sender: FDA-Public Use
  Company Number: US-GLAXOSMITHKLINE-US2021AMR166362

PATIENT
  Sex: Female

DRUGS (1)
  1. ZEJULA [Suspect]
     Active Substance: NIRAPARIB
     Indication: PRODUCT USED FOR UNKNOWN INDICATION
     Dosage: 200 MG, QD

REACTIONS (7)
  - Nausea [Unknown]
  - Constipation [Recovering/Resolving]
  - Flatulence [Unknown]
  - Insomnia [Unknown]
  - Dry mouth [Unknown]
  - Fatigue [Unknown]
  - Tumour marker increased [Not Recovered/Not Resolved]
